FAERS Safety Report 15767542 (Version 1)
Quarter: 2018Q4

REPORT INFORMATION
  Report Type: Spontaneous
  Country: US (occurrence: US)
  Receive Date: 20181227
  Receipt Date: 20181227
  Transmission Date: 20190205
  Serious: No
  Sender: FDA-Public Use
  Company Number: US-BAYER-2018-243190

PATIENT
  Age: 62 Year
  Sex: Female
  Weight: 48 kg

DRUGS (1)
  1. MIRALAX [Suspect]
     Active Substance: POLYETHYLENE GLYCOL 3350
     Indication: GASTROINTESTINAL DISORDER
     Dosage: UNK, QOD
     Route: 048
     Dates: start: 2016

REACTIONS (5)
  - Diarrhoea [Unknown]
  - Product use issue [Unknown]
  - Abdominal pain upper [Unknown]
  - Nausea [Unknown]
  - Headache [Unknown]
